FAERS Safety Report 8063721-8 (Version None)
Quarter: 2011Q4

REPORT INFORMATION
  Report Type: 
  Country: None (occurrence: None)
  Receive Date: 20111221
  Receipt Date: 20110818
  Transmission Date: 20120403
  Serious: Yes (Other)
  Sender: FDA-Public Use
  Company Number: PHHY2011US53846

PATIENT
  Age: 70 Year
  Sex: Female
  Weight: 97 kg

DRUGS (5)
  1. OMEPRAZOLE [Concomitant]
  2. EXJADE [Suspect]
     Indication: MYELOFIBROSIS
     Dosage: 2000 MG, DAILY, ORAL, 1500MG, DAILY, ORAL
     Route: 048
     Dates: start: 20110401
  3. EXJADE [Suspect]
     Indication: IRON METABOLISM DISORDER
     Dosage: 2000 MG, DAILY, ORAL, 1500MG, DAILY, ORAL
     Route: 048
     Dates: start: 20110401
  4. HYDROCODONE BITARTRATE + ACETAMINOPHEN [Concomitant]
  5. FEXOFENADINE HCL [Concomitant]

REACTIONS (1)
  - DIARRHOEA [None]
